FAERS Safety Report 9255821 (Version 2)
Quarter: 2013Q2

REPORT INFORMATION
  Report Type: Spontaneous
  Country: US (occurrence: US)
  Receive Date: 20130425
  Receipt Date: 20130523
  Transmission Date: 20140414
  Serious: Yes (Other)
  Sender: FDA-Public Use
  Company Number: US-ELI_LILLY_AND_COMPANY-US201304004076

PATIENT
  Sex: Female
  Weight: 62.59 kg

DRUGS (23)
  1. FORTEO [Suspect]
     Indication: OSTEOPOROSIS
     Dosage: UNK, QD
     Dates: start: 20130308, end: 20130409
  2. LEVOTHYROXINE SODIUM [Concomitant]
     Dosage: 75 UG, QD
     Route: 048
  3. ASPIRIN [Concomitant]
     Dosage: 81 MG, QD
     Route: 048
  4. AMLODIPINE BESYLATE [Concomitant]
     Dosage: 5 MG, QD
     Route: 048
  5. ATORVASTATIN CALCIUM [Concomitant]
     Dosage: 80 MG, QD
     Route: 048
  6. FENOFIBRATE [Concomitant]
     Dosage: 160 MG, QD
     Route: 048
  7. NEXIUM [Concomitant]
     Dosage: 40 MG, QD
     Route: 048
  8. FLUOXETINE HCL [Concomitant]
     Dosage: 40 MG, QD
     Route: 048
  9. CLONAZEPAM [Concomitant]
     Dosage: 0.75 MG, QD
     Route: 048
  10. ROPINIROLE HYDROCHLORIDE [Concomitant]
     Dosage: UNK, TID
  11. DESLORATADINE [Concomitant]
     Dosage: 5 MG, PRN
     Route: 048
  12. ROFLUMILAST [Concomitant]
     Dosage: 500 UG, QD
     Route: 048
  13. ACLIDINIUM BROMIDE [Concomitant]
     Dosage: 400 UG, BID
     Route: 055
  14. PROAIR HFA [Concomitant]
     Dosage: UNK UNK, EVERY 6 HRS
     Route: 055
  15. POLYETHYLENE GLYCOL [Concomitant]
     Dosage: UNK UNK, QID
     Route: 047
  16. LUMIGAN [Concomitant]
     Dosage: 1 UNK, QD
     Route: 047
  17. TIMOPTIC [Concomitant]
     Dosage: 1 DF, QD
     Route: 047
  18. TYLENOL EXTRA STRENGTH [Concomitant]
     Dosage: 500 MG, PRN
     Route: 048
  19. VITAMIN C [Concomitant]
     Dosage: 500 MG, QD
     Route: 048
  20. CALCIUM [Concomitant]
     Dosage: 600 MG, BID
     Route: 048
  21. VITAMIN D3 [Concomitant]
     Dosage: 2000 U, QD
     Route: 048
  22. FERROUS SULFATE [Concomitant]
     Dosage: 325 MG, UNK
     Route: 048
  23. MULTIVITAMINS [Concomitant]
     Dosage: 1 DF, QD
     Route: 048

REACTIONS (8)
  - Suicidal ideation [Recovered/Resolved]
  - Back pain [Recovered/Resolved]
  - Pain in extremity [Recovered/Resolved]
  - Headache [Recovered/Resolved]
  - Asthenia [Unknown]
  - Gastroenteritis viral [Recovered/Resolved]
  - Anxiety [Unknown]
  - Arthralgia [Unknown]
